FAERS Safety Report 8154010-1 (Version None)
Quarter: 2012Q1

REPORT INFORMATION
  Report Type: 
  Country: None (occurrence: None)
  Receive Date: 20120221
  Receipt Date: 20120221
  Transmission Date: 20120608
  Serious: Yes (Life-Threatening)
  Sender: FDA-Public Use
  Company Number: None

PATIENT
  Age: 56 Year
  Sex: Female
  Weight: 80.285 kg

DRUGS (2)
  1. LYRICA [Suspect]
     Indication: NEURALGIA
     Dosage: 50.0 MG
     Route: 051
     Dates: start: 20120207, end: 20120218
  2. LYRICA [Suspect]
     Indication: POST PROCEDURAL COMPLICATION
     Dosage: 50.0 MG
     Route: 051
     Dates: start: 20120207, end: 20120218

REACTIONS (2)
  - DYSPNOEA [None]
  - ANGIOEDEMA [None]
